FAERS Safety Report 7098088-5 (Version None)
Quarter: 2010Q4

REPORT INFORMATION
  Report Type: 
  Country: None (occurrence: None)
  Receive Date: 20101112
  Receipt Date: 20101102
  Transmission Date: 20110411
  Serious: Yes (Other)
  Sender: FDA-Public Use
  Company Number: CA-JNJFOC-20101101907

PATIENT
  Sex: Male
  Weight: 79 kg

DRUGS (7)
  1. REMICADE [Suspect]
     Indication: COLITIS ULCERATIVE
     Dosage: 6TH INFUSION
     Route: 042
  2. REMICADE [Suspect]
     Route: 042
  3. REMICADE [Suspect]
     Route: 042
  4. REMICADE [Suspect]
     Route: 042
  5. REMICADE [Suspect]
     Route: 042
  6. AZATHIOPRINE [Concomitant]
     Route: 048
  7. PREDNISONE [Concomitant]
     Route: 048

REACTIONS (1)
  - LIMB INJURY [None]
